FAERS Safety Report 10003683 (Version 2)
Quarter: 2014Q1

REPORT INFORMATION
  Report Type: Spontaneous
  Country: US (occurrence: US)
  Receive Date: 20140312
  Receipt Date: 20140325
  Transmission Date: 20141002
  Serious: Yes (Hospitalization, Other)
  Sender: FDA-Public Use
  Company Number: US-009507513-1403USA004863

PATIENT
  Age: 60 Year
  Sex: Male

DRUGS (1)
  1. PROVENTIL [Suspect]
     Indication: CHRONIC OBSTRUCTIVE PULMONARY DISEASE
     Dosage: 1 PUFF EVERY 4-6 HOURS
     Route: 055
     Dates: end: 20140306

REACTIONS (6)
  - Chronic obstructive pulmonary disease [Not Recovered/Not Resolved]
  - Endotracheal intubation [Unknown]
  - Acute respiratory failure [Not Recovered/Not Resolved]
  - Hyperglycaemia [Not Recovered/Not Resolved]
  - Bronchitis pneumococcal [Not Recovered/Not Resolved]
  - Bronchitis [Not Recovered/Not Resolved]
